FAERS Safety Report 8366686-4 (Version None)
Quarter: 2012Q2

REPORT INFORMATION
  Report Type: 
  Country: None (occurrence: None)
  Receive Date: 20120517
  Receipt Date: 20120508
  Transmission Date: 20120825
  Serious: Yes (Hospitalization)
  Sender: FDA-Public Use
  Company Number: US-ASTRAZENECA-2012SE29828

PATIENT
  Age: 81 Year
  Sex: Female

DRUGS (1)
  1. TOPROL-XL [Suspect]
     Dosage: GENERIC
     Route: 048

REACTIONS (1)
  - BLOOD PRESSURE INCREASED [None]
